FAERS Safety Report 6911854-9 (Version None)
Quarter: 2010Q3

REPORT INFORMATION
  Report Type: 
  Country: None (occurrence: None)
  Receive Date: 20100806
  Receipt Date: 20070815
  Transmission Date: 20110219
  Serious: No
  Sender: FDA-Public Use
  Company Number: US-PFIZER INC-2007068906

PATIENT

DRUGS (7)
  1. DETROL [Suspect]
  2. PRILOSEC [Interacting]
  3. SYNTHROID [Interacting]
  4. FIORICET [Interacting]
  5. VALIUM [Interacting]
  6. DIPHENHYDRAMINE [Interacting]
  7. HERBAL PREPARATION [Interacting]

REACTIONS (2)
  - DRUG INTERACTION [None]
  - FAECES DISCOLOURED [None]
